FAERS Safety Report 6493157-2 (Version None)
Quarter: 2009Q4

REPORT INFORMATION
  Report Type: 
  Country: None (occurrence: None)
  Receive Date: 20091214
  Receipt Date: 20091209
  Transmission Date: 20100525
  Serious: Yes (Hospitalization)
  Sender: FDA-Public Use
  Company Number: US-EISAI INC.-M7002-00409-CLI-US

PATIENT
  Sex: Female
  Weight: 61 kg

DRUGS (7)
  1. ONTAK [Suspect]
     Indication: PERIPHERAL T-CELL LYMPHOMA UNSPECIFIED
     Route: 042
     Dates: start: 20070206, end: 20070523
  2. CYCLOPHOSPHAMIDE [Concomitant]
     Route: 042
     Dates: start: 20070209, end: 20070524
  3. DOXORUBICIN [Concomitant]
     Route: 042
     Dates: start: 20070209, end: 20070524
  4. LORAZEPAM [Concomitant]
  5. OXYCODONE [Concomitant]
  6. PREDNISONE [Concomitant]
     Route: 048
     Dates: start: 20070209, end: 20070524
  7. VINCRISTINE [Concomitant]
     Route: 042
     Dates: start: 20070209, end: 20070524

REACTIONS (1)
  - LYMPHOPENIA [None]
